FAERS Safety Report 8622923-X (Version None)
Quarter: 2012Q3

REPORT INFORMATION
  Report Type: 
  Country: None (occurrence: None)
  Receive Date: 20120827
  Receipt Date: 20120823
  Transmission Date: 20120928
  Serious: Yes (Death, Life-Threatening, Hospitalization)
  Sender: FDA-Public Use
  Company Number: PHHY2012BR073297

PATIENT
  Sex: Male
  Weight: 75 kg

DRUGS (4)
  1. LYRICA [Concomitant]
     Indication: PAIN
     Dosage: 1 DF, UNK
     Route: 048
  2. ALOIN [Concomitant]
     Indication: AGGRESSION
     Dosage: 1 DF, UNK
     Route: 048
  3. EXELON [Suspect]
     Indication: DEMENTIA ALZHEIMER'S TYPE
     Dosage: 4.6 MG, DAILY
     Route: 062
  4. RISPERIDONE [Concomitant]
     Indication: DEPRESSION

REACTIONS (8)
  - CONVULSION [None]
  - AGGRESSION [None]
  - HYPERTENSION [None]
  - DEFAECATION URGENCY [None]
  - CEREBROVASCULAR ACCIDENT [None]
  - COMA [None]
  - VOMITING [None]
  - ASPHYXIA [None]
